FAERS Safety Report 6419501-X (Version None)
Quarter: 2009Q4

REPORT INFORMATION
  Report Type: 
  Country: None (occurrence: None)
  Receive Date: 20091029
  Receipt Date: 20091020
  Transmission Date: 20100525
  Serious: Yes (Hospitalization)
  Sender: FDA-Public Use
  Company Number: AU-JNJFOC-20070506772

PATIENT
  Sex: Male
  Weight: 101 kg

DRUGS (2)
  1. PALIPERIDONE ER [Suspect]
     Route: 048
  2. PALIPERIDONE ER [Suspect]
     Indication: SCHIZOPHRENIA
     Route: 048

REACTIONS (1)
  - SUICIDAL IDEATION [None]
